FAERS Safety Report 10713460 (Version 1)
Quarter: 2015Q1

REPORT INFORMATION
  Report Type: Spontaneous
  Country: US (occurrence: None)
  Receive Date: 20150114
  Receipt Date: 20150114
  Transmission Date: 20150721
  Serious: Yes (Hospitalization)
  Sender: FDA-Public Use
  Company Number: None

PATIENT
  Age: 62 Year
  Sex: Male
  Weight: 117.2 kg

DRUGS (3)
  1. CLOPIDOGREL [Suspect]
     Active Substance: CLOPIDOGREL BISULFATE
     Route: 048
     Dates: start: 20130731, end: 20141230
  2. WARFARIN [Suspect]
     Active Substance: WARFARIN
     Indication: CARDIAC FAILURE CONGESTIVE
     Route: 048
     Dates: start: 20130502, end: 20141230
  3. WARFARIN [Suspect]
     Active Substance: WARFARIN
     Indication: CORONARY ARTERY DISEASE
     Route: 048
     Dates: start: 20130502, end: 20141230

REACTIONS (5)
  - Pneumonitis [None]
  - International normalised ratio increased [None]
  - Chronic obstructive pulmonary disease [None]
  - Bronchitis [None]
  - Toxicity to various agents [None]

NARRATIVE: CASE EVENT DATE: 20141230
